FAERS Safety Report 9844085 (Version 2)
Quarter: 2014Q1

REPORT INFORMATION
  Report Type: Spontaneous
  Country: HK (occurrence: HK)
  Receive Date: 20140127
  Receipt Date: 20140218
  Transmission Date: 20141002
  Serious: No
  Sender: FDA-Public Use
  Company Number: HK-ROCHE-1337890

PATIENT
  Age: 63 Year
  Sex: Female
  Weight: 64.5 kg

DRUGS (6)
  1. MIRCERA [Suspect]
     Indication: NEPHROGENIC ANAEMIA
     Route: 058
     Dates: start: 201112
  2. LIPITOR [Concomitant]
     Indication: HYPERLIPIDAEMIA
     Route: 048
  3. BETALOC [Concomitant]
     Indication: HYPERTENSION
     Route: 048
  4. NORVASC [Concomitant]
     Indication: HYPERTENSION
     Route: 048
  5. PEPCIDINE [Concomitant]
     Indication: DYSPEPSIA
     Route: 048
  6. LASIX [Concomitant]
     Indication: OEDEMA
     Route: 048

REACTIONS (1)
  - Acoustic neuroma [Not Recovered/Not Resolved]
